FAERS Safety Report 5450275-5 (Version None)
Quarter: 2007Q3

REPORT INFORMATION
  Report Type: 
  Country: None (occurrence: None)
  Receive Date: 20070912
  Receipt Date: 20070903
  Transmission Date: 20080115
  Serious: Yes (Other)
  Sender: FDA-Public Use
  Company Number: DE-SANOFI-SYNTHELABO-A04200701448

PATIENT
  Age: 63 Year
  Sex: Male

DRUGS (3)
  1. FLUOROURACIL INJ [Interacting]
     Indication: DRUG USE FOR UNKNOWN INDICATION
     Route: 041
     Dates: start: 20070101
  2. ELOXATIN [Suspect]
     Indication: DRUG USE FOR UNKNOWN INDICATION
     Route: 041
     Dates: start: 20070101
  3. ALCOHOL [Interacting]
     Indication: DRUG USE FOR UNKNOWN INDICATION
     Dosage: 1 GLASS OF STRONG BEER
     Route: 048
     Dates: start: 20070101, end: 20070101

REACTIONS (3)
  - ALCOHOL INTERACTION [None]
  - FALL [None]
  - LOWER LIMB FRACTURE [None]
